FAERS Safety Report 16479762 (Version 2)
Quarter: 2019Q3

REPORT INFORMATION
  Report Type: Spontaneous
  Country: US (occurrence: US)
  Receive Date: 20190626
  Receipt Date: 20190711
  Transmission Date: 20191004
  Serious: Yes (Hospitalization)
  Sender: FDA-Public Use
  Company Number: US-FARMAPROD-201906-0944

PATIENT
  Age: 48 Year
  Sex: Male

DRUGS (6)
  1. OXERVATE [Suspect]
     Active Substance: CENEGERMIN-BKBJ
     Indication: INJURY OF CONJUNCTIVA
     Route: 047
     Dates: start: 20190517
  2. ERYTHROMYCIN. [Concomitant]
     Active Substance: ERYTHROMYCIN
     Dates: start: 20181228
  3. INVELTYS [Concomitant]
     Active Substance: LOTEPREDNOL ETABONATE
     Dates: start: 20190205
  4. PREDNISOLONE ACETATE. [Concomitant]
     Active Substance: PREDNISOLONE ACETATE
     Dates: start: 2014
  5. OFLOXACIN. [Concomitant]
     Active Substance: OFLOXACIN
     Dates: start: 20190430
  6. ARTIFICIAL TEARS [Concomitant]
     Active Substance: GLYCERIN\HYPROMELLOSES\POLYETHYLENE GLYCOL 400
     Dates: start: 2013

REACTIONS (1)
  - Hospitalisation [Unknown]

NARRATIVE: CASE EVENT DATE: 20190528
